FAERS Safety Report 15137500 (Version 5)
Quarter: 2020Q1

REPORT INFORMATION
  Report Type: Spontaneous
  Country: CH (occurrence: CH)
  Receive Date: 20180712
  Receipt Date: 20200218
  Transmission Date: 20200409
  Serious: Yes (Death, Other)
  Sender: FDA-Public Use
  Company Number: CH-GILEAD-2018-0349371

PATIENT
  Age: 58 Year
  Sex: Male

DRUGS (14)
  1. DESCOVY [Suspect]
     Active Substance: EMTRICITABINE\TENOFOVIR ALAFENAMIDE FUMARATE
     Indication: HIV INFECTION
     Dosage: 200/25 MG, QD
     Route: 048
     Dates: start: 20170518, end: 202001
  2. VI-DE 3 [Concomitant]
     Active Substance: CHOLECALCIFEROL
     Dates: start: 2017
  3. VITAMINE A [Concomitant]
     Active Substance: RETINOL
     Dosage: AS NECESSARY
  4. DAFALGAN [Concomitant]
     Active Substance: ACETAMINOPHEN
     Dosage: AS NECESSARY
  5. CANDESARTAN. [Concomitant]
     Active Substance: CANDESARTAN
     Dates: start: 2018
  6. LYRICA [Concomitant]
     Active Substance: PREGABALIN
     Dates: start: 20180608
  7. CIPRALEX [Concomitant]
     Active Substance: ESCITALOPRAM OXALATE
     Dates: start: 2011
  8. JANUMET [Concomitant]
     Active Substance: METFORMIN HYDROCHLORIDE\SITAGLIPTIN PHOSPHATE
     Dosage: UNK
  9. TIVICAY [Concomitant]
     Active Substance: DOLUTEGRAVIR SODIUM
     Dates: start: 2014
  10. ROSUVASTATIN. [Concomitant]
     Active Substance: ROSUVASTATIN
     Dates: start: 2018
  11. METOPROLOL. [Concomitant]
     Active Substance: METOPROLOL
     Dates: start: 2018
  12. VISCOTEARS [Concomitant]
     Active Substance: CARBOMER
     Dosage: AS NECESSARY
  13. ASPIRIN CARDIO [Concomitant]
     Active Substance: ASPIRIN
     Dates: start: 2018
  14. DIAMICRON [Concomitant]
     Active Substance: GLICLAZIDE
     Dates: start: 2017

REACTIONS (1)
  - Retinal toxicity [Not Recovered/Not Resolved]

NARRATIVE: CASE EVENT DATE: 201806
